FAERS Safety Report 25498451 (Version 2)
Quarter: 2025Q4

REPORT INFORMATION
  Report Type: Report from Study
  Country: CN (occurrence: CN)
  Receive Date: 20250701
  Receipt Date: 20251110
  Transmission Date: 20260118
  Serious: Yes (Hospitalization)
  Sender: ABBVIE
  Company Number: CN-ABBVIE-6343658

PATIENT
  Age: 78 Year
  Sex: Male
  Weight: 80 kg

DRUGS (59)
  1. OZURDEX [Suspect]
     Active Substance: DEXAMETHASONE
     Indication: Diabetic retinal oedema
     Dosage: TIME INTERVAL: AS NECESSARY: 700 MICROGRAM?FREQUENCY: ONCE?DURATION: IN THE OS
     Route: 050
     Dates: start: 20241129, end: 20241129
  2. OZURDEX [Suspect]
     Active Substance: DEXAMETHASONE
     Dosage: TIME INTERVAL: AS NECESSARY: 700 MICROGRAM?FREQUENCY : ONCE?DURATION : IN THE OS
     Route: 050
     Dates: start: 20250508, end: 20250508
  3. OZURDEX [Suspect]
     Active Substance: DEXAMETHASONE
     Dosage: TIME INTERVAL: AS NECESSARY: 700 MICROGRAM?FREQUENCY: ONCE?DURATION: IN THE OS
     Route: 050
     Dates: start: 20251010, end: 20251010
  4. OZURDEX [Suspect]
     Active Substance: DEXAMETHASONE
     Dosage: TIME INTERVAL: AS NECESSARY: 700 MICROGRAM?FREQUENCY : ONCE?DURATION : IN THE OS
     Route: 050
     Dates: start: 20250225, end: 20250225
  5. FARICIMAB [Concomitant]
     Active Substance: FARICIMAB
     Indication: Diabetic retinal oedema
     Dosage: 0.05 MILLILITER?FREQUENCY TEXT: ONCE
     Route: 031
     Dates: start: 20250411, end: 20250411
  6. TRIAMCINOLONE ACETONIDE [Concomitant]
     Active Substance: TRIAMCINOLONE ACETONIDE
     Indication: Diabetic retinal oedema
     Dosage: 0.5 MILLILITER?FREQUENCY TEXT: ONCE
     Route: 031
     Dates: start: 20250127, end: 20250127
  7. METHYLCOBALAMIN [Concomitant]
     Active Substance: METHYLCOBALAMIN
     Indication: Diabetic retinopathy
     Dosage: TIME INTERVAL: 0.33333333 DAYS
     Route: 048
     Dates: start: 20250324
  8. JOLETHIN [Concomitant]
     Active Substance: JOLETHIN
     Indication: Diabetic retinal oedema
     Dosage: TIME INTERVAL: 0.33333333 DAYS
     Route: 048
     Dates: start: 20250206, end: 20250215
  9. Fu Fang Dan Shen Di Wan [Concomitant]
     Indication: Diabetic retinal oedema
     Dosage: TIME INTERVAL: 0.33333333 DAYS
     Route: 048
     Dates: start: 20251009
  10. LEVOFLOXACIN HYDROCHLORIDE [Concomitant]
     Active Substance: LEVOFLOXACIN HYDROCHLORIDE
     Indication: Prophylaxis
     Dosage: TIME INTERVAL: 0.33333333 DAYS
     Route: 047
     Dates: start: 20241227, end: 20241229
  11. LEVOFLOXACIN HYDROCHLORIDE [Concomitant]
     Active Substance: LEVOFLOXACIN HYDROCHLORIDE
     Indication: Prophylaxis
     Dosage: TIME INTERVAL: 0.16666667 DAYS
     Route: 047
     Dates: start: 20250303, end: 20250303
  12. LEVOFLOXACIN HYDROCHLORIDE [Concomitant]
     Active Substance: LEVOFLOXACIN HYDROCHLORIDE
     Indication: Prophylaxis
     Dosage: TIME INTERVAL: 0.16666667 DAYS
     Route: 047
     Dates: start: 20250106, end: 20250106
  13. LEVOFLOXACIN HYDROCHLORIDE [Concomitant]
     Active Substance: LEVOFLOXACIN HYDROCHLORIDE
     Indication: Prophylaxis
     Dosage: TIME INTERVAL: 0.16666667 DAYS
     Route: 047
     Dates: start: 20250508, end: 20250508
  14. LEVOFLOXACIN HYDROCHLORIDE [Concomitant]
     Active Substance: LEVOFLOXACIN HYDROCHLORIDE
     Indication: Prophylaxis
     Dosage: TIME INTERVAL: 0.33333333 DAYS
     Route: 047
     Dates: start: 20241205, end: 20241207
  15. LEVOFLOXACIN HYDROCHLORIDE [Concomitant]
     Active Substance: LEVOFLOXACIN HYDROCHLORIDE
     Indication: Prophylaxis
     Dosage: TIME INTERVAL: 0.16666667 DAYS
     Route: 047
     Dates: start: 20241204, end: 20241204
  16. LEVOFLOXACIN HYDROCHLORIDE [Concomitant]
     Active Substance: LEVOFLOXACIN HYDROCHLORIDE
     Indication: Prophylaxis
     Dosage: TIME INTERVAL: 0.33333333 DAYS
     Route: 047
     Dates: start: 20250504, end: 20250506
  17. LEVOFLOXACIN HYDROCHLORIDE [Concomitant]
     Active Substance: LEVOFLOXACIN HYDROCHLORIDE
     Indication: Prophylaxis
     Dosage: TIME INTERVAL: 0.16666667 DAYS
     Route: 047
     Dates: start: 20250123, end: 20250123
  18. LEVOFLOXACIN HYDROCHLORIDE [Concomitant]
     Active Substance: LEVOFLOXACIN HYDROCHLORIDE
     Indication: Prophylaxis
     Dosage: TIME INTERVAL: 0.33333333 DAYS
     Route: 047
     Dates: start: 20250124, end: 20250126
  19. LEVOFLOXACIN HYDROCHLORIDE [Concomitant]
     Active Substance: LEVOFLOXACIN HYDROCHLORIDE
     Indication: Prophylaxis
     Dosage: TIME INTERVAL: 0.33333333 DAYS
     Route: 048
     Dates: start: 20241130, end: 20241202
  20. LEVOFLOXACIN HYDROCHLORIDE [Concomitant]
     Active Substance: LEVOFLOXACIN HYDROCHLORIDE
     Indication: Prophylaxis
     Dosage: TIME INTERVAL: 0.33333333 DAYS
     Route: 047
     Dates: start: 20250107, end: 20250109
  21. LEVOFLOXACIN HYDROCHLORIDE [Concomitant]
     Active Substance: LEVOFLOXACIN HYDROCHLORIDE
     Indication: Prophylaxis
     Dosage: TIME INTERVAL: 0.16666667 DAYS
     Route: 047
     Dates: start: 20241226, end: 20241226
  22. LEVOFLOXACIN HYDROCHLORIDE [Concomitant]
     Active Substance: LEVOFLOXACIN HYDROCHLORIDE
     Indication: Prophylaxis
     Dosage: TIME INTERVAL: 0.33333333 DAYS
     Route: 047
     Dates: start: 20250226, end: 20250228
  23. LEVOFLOXACIN HYDROCHLORIDE [Concomitant]
     Active Substance: LEVOFLOXACIN HYDROCHLORIDE
     Indication: Prophylaxis
     Dosage: TIME INTERVAL: 0.33333333 DAYS
     Route: 047
     Dates: start: 20250412, end: 20250414
  24. GLIMEPIRIDE [Concomitant]
     Active Substance: GLIMEPIRIDE
     Indication: Type 2 diabetes mellitus
     Dosage: TIME INTERVAL: 0.33333333 DAYS
     Route: 048
     Dates: start: 2024, end: 20250525
  25. TOBRAMYCIN AND DEXAMETHASONE [Concomitant]
     Active Substance: DEXAMETHASONE\TOBRAMYCIN
     Indication: Prophylaxis
     Dosage: APPROPRIATE AMOUNT
     Route: 047
     Dates: start: 20250508, end: 20250508
  26. TOBRAMYCIN AND DEXAMETHASONE [Concomitant]
     Active Substance: DEXAMETHASONE\TOBRAMYCIN
     Indication: Prophylaxis
     Dosage: APPROPRIATE AMOUNT
     Route: 047
     Dates: start: 20250303, end: 20250303
  27. TOBRAMYCIN AND DEXAMETHASONE [Concomitant]
     Active Substance: DEXAMETHASONE\TOBRAMYCIN
     Indication: Prophylaxis
     Dosage: FREQUENCY TEXT: ONCE
     Dates: start: 20241226, end: 20241226
  28. TOBRAMYCIN AND DEXAMETHASONE [Concomitant]
     Active Substance: DEXAMETHASONE\TOBRAMYCIN
     Indication: Prophylaxis
     Dosage: TIME INTERVAL: 0.16666667 DAYS: FREQUENCY TEXT: ONCE
     Route: 047
     Dates: start: 20250411, end: 20250411
  29. TOBRAMYCIN AND DEXAMETHASONE [Concomitant]
     Active Substance: DEXAMETHASONE\TOBRAMYCIN
     Indication: Prophylaxis
     Dosage: APPROPRIATE AMOUNT
     Route: 047
     Dates: start: 20250123, end: 20250123
  30. TOBRAMYCIN AND DEXAMETHASONE [Concomitant]
     Active Substance: DEXAMETHASONE\TOBRAMYCIN
     Indication: Prophylaxis
     Dosage: APPROPRIATE AMOUNT
     Route: 047
     Dates: start: 20250225, end: 20250225
  31. TOBRAMYCIN AND DEXAMETHASONE [Concomitant]
     Active Substance: DEXAMETHASONE\TOBRAMYCIN
     Indication: Prophylaxis
     Dosage: FREQUENCY TEXT: ONCE
     Dates: start: 20241129, end: 20241129
  32. Mai Zhi Ling Pian [Concomitant]
     Indication: Diabetic retinal oedema
     Route: 048
     Dates: start: 20241227, end: 20250105
  33. Compound Danshen [Concomitant]
     Indication: Diabetic retinopathy
     Dosage: TIME INTERVAL: 0.33333333 DAYS: DOSE FORM: DROPPING PILLS
     Route: 048
     Dates: start: 20250123, end: 20250209
  34. Compound Danshen [Concomitant]
     Indication: Diabetic retinopathy
     Dosage: TIME INTERVAL: 0.33333333 DAYS: DOSE FORM: DROPPING PILLS
     Route: 048
     Dates: start: 20250425, end: 20250430
  35. Qi Shen Yi Qi [Concomitant]
     Indication: Prophylaxis
     Dosage: TIME INTERVAL: 0.33333333 DAYS
     Route: 048
     Dates: start: 202510
  36. SODIUM HYALURONATE [Concomitant]
     Active Substance: HYALURONATE SODIUM
     Indication: Prophylaxis
     Dosage: FREQUENCY TEXT: PRN
     Route: 047
     Dates: start: 20250304, end: 20250309
  37. SODIUM HYALURONATE [Concomitant]
     Active Substance: HYALURONATE SODIUM
     Indication: Prophylaxis
     Dosage: FREQUENCY TEXT: PRN
     Route: 047
     Dates: start: 20250206, end: 20250214
  38. VINCAMINE [Concomitant]
     Active Substance: VINCAMINE
     Indication: Diabetic retinopathy
     Dosage: DOSE FORM: SUSTAINED RELEASE CAPSULES
     Route: 048
     Dates: start: 20250324, end: 20250404
  39. BROMFENAC SODIUM [Concomitant]
     Active Substance: BROMFENAC SODIUM
     Indication: Prophylaxis
     Route: 047
     Dates: start: 20250127, end: 202502
  40. DAPAGLIFLOZIN [Concomitant]
     Active Substance: DAPAGLIFLOZIN
     Indication: Type 2 diabetes mellitus
     Dosage: 5 MILLIGRAM
     Route: 048
     Dates: start: 2021, end: 20250525
  41. FLUORESCEIN SODIUM [Concomitant]
     Active Substance: FLUORESCEIN SODIUM
     Indication: Vascular imaging
     Route: 047
     Dates: start: 20251103, end: 20251103
  42. CALCIUM DOBESILATE [Concomitant]
     Active Substance: CALCIUM DOBESILATE
     Indication: Diabetic retinopathy
     Dosage: TIME INTERVAL: 0.33333333 DAYS
     Route: 048
     Dates: start: 20250206, end: 202504
  43. Tropicamide Phenylephrine [Concomitant]
     Indication: Pupil dilation procedure
     Dosage: TIME INTERVAL: 0.33333333 DAYS
     Route: 047
     Dates: start: 20241204, end: 20241204
  44. Tropicamide Phenylephrine [Concomitant]
     Indication: Pupil dilation procedure
     Dosage: APPROPRIATE AMOUNT
     Route: 047
     Dates: start: 20250106, end: 20250106
  45. Tropicamide Phenylephrine [Concomitant]
     Indication: Pupil dilation procedure
     Dosage: TIME INTERVAL: 0.33333333 DAYS
     Dates: start: 20241129, end: 20241129
  46. POLYVINYL ALCOHOL [Concomitant]
     Active Substance: POLYVINYL ALCOHOL
     Indication: Dry eye
     Route: 047
     Dates: start: 20250410, end: 20250424
  47. AFLIBERCEPT [Concomitant]
     Active Substance: AFLIBERCEPT
     Indication: Diabetic retinal oedema
     Route: 031
     Dates: start: 20250626, end: 20250626
  48. LIDOCAINE HYDROCHLORIDE [Concomitant]
     Active Substance: LIDOCAINE HYDROCHLORIDE
     Indication: Local anaesthesia
     Dosage: 0.3 MILLILITER?FREQUENCY TEXT: ONCE
     Route: 031
     Dates: start: 20250127, end: 20250127
  49. Proparacaine Hyrochloride [Concomitant]
     Indication: Prophylaxis
     Dosage: 3 DROP
     Route: 047
     Dates: start: 20250123, end: 20250123
  50. Proparacaine Hyrochloride [Concomitant]
     Indication: Prophylaxis
     Dosage: FREQUENCY TEXT: ONCE
     Route: 047
     Dates: start: 20241226, end: 20241226
  51. Proparacaine Hyrochloride [Concomitant]
     Indication: Prophylaxis
     Dosage: 3 DROP
     Route: 047
     Dates: start: 20250106, end: 20250106
  52. Proparacaine Hyrochloride [Concomitant]
     Indication: Prophylaxis
     Dosage: FREQUENCY TEXT: ONCE
     Route: 047
     Dates: start: 20250411, end: 20250411
  53. Proparacaine Hyrochloride [Concomitant]
     Indication: Prophylaxis
     Dosage: 3 DROP
     Route: 047
     Dates: start: 20250303, end: 20250303
  54. Proparacaine Hyrochloride [Concomitant]
     Indication: Prophylaxis
     Dosage: FREQUENCY TEXT: ONCE
     Dates: start: 20241129, end: 20241129
  55. Proparacaine Hyrochloride [Concomitant]
     Indication: Prophylaxis
     Dosage: 60 MICROLITER?FREQUENCY TEXT: ONCE
     Route: 047
     Dates: start: 20250508, end: 20250508
  56. Proparacaine Hyrochloride [Concomitant]
     Indication: Prophylaxis
     Dosage: FREQUENCY TEXT: ONCE
     Dates: start: 20241204, end: 20241204
  57. Proparacaine Hyrochloride [Concomitant]
     Indication: Prophylaxis
     Dosage: FREQUENCY TEXT: ONCE
     Route: 047
     Dates: start: 20250225, end: 20250225
  58. Tang Mai Kang Pian [Concomitant]
     Indication: Type 2 diabetes mellitus
     Dosage: TIME INTERVAL: 0.33333333 DAYS
     Route: 048
     Dates: start: 202510
  59. DEXAMETHASONE [Concomitant]
     Active Substance: DEXAMETHASONE
     Indication: Diabetic retinal oedema
     Dosage: 0.7 MILLIGRAM?INTRAVITREAL IMPLANT?FREQUENCY TEXT: ONCE?DURATION TEXT: IN THE OD
     Route: 031
     Dates: start: 20250225, end: 20250225

REACTIONS (3)
  - Diabetes mellitus inadequate control [Recovered/Resolved]
  - Intraocular pressure increased [Recovered/Resolved]
  - Vitreous opacities [Recovered/Resolved]

NARRATIVE: CASE EVENT DATE: 20241201
